FAERS Safety Report 6555296-7 (Version None)
Quarter: 2010Q1

REPORT INFORMATION
  Report Type: 
  Country: None (occurrence: None)
  Receive Date: 20100128
  Receipt Date: 20090325
  Transmission Date: 20100710
  Serious: Yes (Other)
  Sender: FDA-Public Use
  Company Number: A0776930A

PATIENT
  Age: 49 Year
  Sex: Female
  Weight: 61.4 kg

DRUGS (4)
  1. BUPROPION [Suspect]
     Route: 048
     Dates: end: 20080301
  2. CHANTIX [Suspect]
     Dosage: 1MG PER DAY
     Route: 048
     Dates: start: 20080301
  3. LISINOPRIL [Concomitant]
  4. LEVOTHYROXINE SODIUM [Concomitant]

REACTIONS (3)
  - DEPRESSION [None]
  - INSOMNIA [None]
  - SUICIDAL IDEATION [None]
